FAERS Safety Report 9101342 (Version 1)
Quarter: 2013Q1

REPORT INFORMATION
  Report Type: Spontaneous
  Country: NZ (occurrence: NZ)
  Receive Date: 20130218
  Receipt Date: 20130218
  Transmission Date: 20140127
  Serious: Yes (Other)
  Sender: FDA-Public Use
  Company Number: PHHY2013NZ014996

PATIENT
  Age: 70 Year
  Sex: Female

DRUGS (5)
  1. METOPROLOL [Suspect]
     Dosage: UNK UKN, UNK
     Route: 048
  2. OMEPRAZOLE [Concomitant]
     Dosage: UNK UKN, UNK
     Route: 048
  3. ASPIRIN [Concomitant]
     Dosage: UNK UKN, UNK
     Route: 048
  4. SIMVASTATIN [Concomitant]
     Dosage: UNK UKN, UNK
     Route: 048
  5. HYDROCHLOROTHIAZIDE [Concomitant]
     Dosage: UNK UKN, UNK
     Route: 048

REACTIONS (1)
  - Anaphylactic shock [Unknown]
